FAERS Safety Report 10638557 (Version 1)
Quarter: 2014Q4

REPORT INFORMATION
  Report Type: Spontaneous
  Country: US (occurrence: None)
  Receive Date: 20141121
  Receipt Date: 20141121
  Transmission Date: 20150529
  Serious: No
  Sender: FDA-Public Use
  Company Number: 163-10004-14084762

PATIENT
  Age: 71 Year
  Sex: Female

DRUGS (7)
  1. TRAMADOL-APAP (ULTRACET) [Concomitant]
  2. OMEPRAZOLE (OMEPRAZOLE) [Concomitant]
     Active Substance: OMEPRAZOLE
  3. FOLIC ACID (FOLIC ACID) [Concomitant]
     Active Substance: FOLIC ACID
  4. GABAPENTIN (GABAPENTIN) [Concomitant]
     Active Substance: GABAPENTIN
  5. HYDROXYCHLOROQUINE (HYDROXYCHLOROQUINE) [Concomitant]
  6. OTEZLA [Suspect]
     Active Substance: APREMILAST
     Indication: PSORIATIC ARTHROPATHY
     Dosage: 60 MG, 2 IN 1 D, PO
     Route: 048
     Dates: start: 20140714
  7. MELOXICAM (MELOXICAM) [Concomitant]
     Active Substance: MELOXICAM

REACTIONS (3)
  - Depressed mood [None]
  - Frequent bowel movements [None]
  - Nausea [None]

NARRATIVE: CASE EVENT DATE: 201407
